FAERS Safety Report 13202309 (Version 1)
Quarter: 2017Q1

REPORT INFORMATION
  Report Type: Spontaneous
  Country: US (occurrence: US)
  Receive Date: 20170209
  Receipt Date: 20170209
  Transmission Date: 20170428
  Serious: No
  Sender: FDA-Public Use
  Company Number: US-PFIZER INC-2017057452

PATIENT
  Sex: Male

DRUGS (4)
  1. CARBOPLATIN. [Concomitant]
     Active Substance: CARBOPLATIN
     Dosage: UNK
  2. ETOPOSIDE. [Concomitant]
     Active Substance: ETOPOSIDE
     Dosage: UNK
  3. SUTENT [Suspect]
     Active Substance: SUNITINIB MALATE
     Indication: SMALL CELL LUNG CANCER
     Dosage: 37.5 MG, UNK
     Dates: start: 20160614, end: 20161101
  4. SUTENT [Suspect]
     Active Substance: SUNITINIB MALATE
     Dosage: 37.5 MG, UNK (PATIENT WAS ON 2:1 DOSING, WENT TO 2:2 DOSING ON 18JUL)
     Dates: start: 20160614, end: 20161101

REACTIONS (2)
  - Product use issue [Unknown]
  - Neoplasm progression [Unknown]
